FAERS Safety Report 6700010-5 (Version None)
Quarter: 2010Q2

REPORT INFORMATION
  Report Type: 
  Country: None (occurrence: None)
  Receive Date: 20100422
  Receipt Date: 20100217
  Transmission Date: 20101027
  Serious: No
  Sender: FDA-Public Use
  Company Number: 2010AL000022

PATIENT
  Sex: Female
  Weight: 70.3075 kg

DRUGS (1)
  1. FOLOTYN [Suspect]
     Indication: T-CELL LYMPHOMA
     Dosage: ;QW;IV
     Route: 042
     Dates: start: 20100107, end: 20100211

REACTIONS (2)
  - EPISTAXIS [None]
  - NASAL DRYNESS [None]
